FAERS Safety Report 7765279-7 (Version None)
Quarter: 2011Q3

REPORT INFORMATION
  Report Type: 
  Country: None (occurrence: None)
  Receive Date: 20110921
  Receipt Date: 20110916
  Transmission Date: 20111222
  Serious: Yes (Other)
  Sender: FDA-Public Use
  Company Number: US-BAYER-2011-087523

PATIENT
  Sex: Male

DRUGS (3)
  1. NEXAVAR [Suspect]
     Dosage: UNK
  2. CLARITIN-D 24 HOUR [Concomitant]
  3. FENTANYL [Concomitant]

REACTIONS (16)
  - WEIGHT DECREASED [None]
  - DISCOMFORT [None]
  - DIARRHOEA [None]
  - DYSPHONIA [None]
  - RESTLESSNESS [None]
  - NAUSEA [None]
  - MUSCLE SPASMS [None]
  - EPIGLOTTIC OEDEMA [None]
  - COUGH [None]
  - BLOOD PRESSURE INCREASED [None]
  - VOMITING [None]
  - RHINORRHOEA [None]
  - DECREASED APPETITE [None]
  - GINGIVAL DISORDER [None]
  - PARAESTHESIA [None]
  - CONSTIPATION [None]
